FAERS Safety Report 15706416 (Version 2)
Quarter: 2019Q1

REPORT INFORMATION
  Report Type: Spontaneous
  Country: US (occurrence: US)
  Receive Date: 20181210
  Receipt Date: 20190204
  Transmission Date: 20190417
  Serious: Yes (Other)
  Sender: FDA-Public Use
  Company Number: US-BAYER-2018-228391

PATIENT
  Age: 25 Year
  Sex: Female
  Weight: 64.85 kg

DRUGS (3)
  1. MEGESTROL ACETATE. [Concomitant]
     Active Substance: MEGESTROL ACETATE
  2. MIRENA [Suspect]
     Active Substance: LEVONORGESTREL
     Indication: CONTRACEPTION
     Dosage: 20 MCG/24HR, CONT
     Route: 015
     Dates: start: 20180330, end: 20181116
  3. MIRENA [Suspect]
     Active Substance: LEVONORGESTREL
     Indication: CONTRACEPTION
     Dosage: UNK

REACTIONS (6)
  - Uterine haemorrhage [None]
  - Vaginal haemorrhage [None]
  - Uterine leiomyoma [None]
  - Device expulsion [Recovered/Resolved]
  - Menorrhagia [None]
  - Genital haemorrhage [None]

NARRATIVE: CASE EVENT DATE: 20181102
